FAERS Safety Report 8266376-2 (Version None)
Quarter: 2012Q2

REPORT INFORMATION
  Report Type: 
  Country: None (occurrence: None)
  Receive Date: 20120406
  Receipt Date: 20120326
  Transmission Date: 20120825
  Serious: Yes (Hospitalization, Other)
  Sender: FDA-Public Use
  Company Number: US-CELGENEUS-163-21880-12012787

PATIENT
  Sex: Male

DRUGS (24)
  1. REVLIMID [Suspect]
     Dosage: 10 MILLIGRAM
     Route: 048
     Dates: start: 20120229
  2. ASPIRIN [Concomitant]
     Dosage: 1
     Route: 048
  3. GLIPIZIDE [Concomitant]
     Dosage: 5 MILLIGRAM
     Route: 048
  4. OMEPRAZOLE [Concomitant]
     Dosage: 20 MILLIGRAM
     Route: 065
  5. FUROSEMIDE [Concomitant]
     Dosage: 80 MILLIGRAM
     Route: 048
  6. REVLIMID [Suspect]
     Dosage: 10 MILLIGRAM
     Route: 048
     Dates: start: 20110401
  7. DEXAMETHASONE [Concomitant]
     Route: 065
  8. DOCUSATE/SENNA [Concomitant]
     Route: 065
  9. ATENOLOL [Concomitant]
     Indication: HYPERTENSION
     Dosage: 3
     Route: 065
  10. OXYCODONE HCL [Concomitant]
     Indication: BONE PAIN
     Dosage: 1
     Route: 048
  11. PERCOCET [Concomitant]
     Indication: PAIN
     Dosage: 5/325MG
     Route: 048
  12. NYSTATIN [Concomitant]
     Dosage: 100000/ML
     Route: 048
  13. REVLIMID [Suspect]
     Indication: MULTIPLE MYELOMA
     Dosage: 15 MILLIGRAM
     Route: 048
     Dates: start: 20100818, end: 20110101
  14. ASPIRIN [Concomitant]
     Dosage: 325 MILLIGRAM
     Route: 065
  15. ATENOLOL [Concomitant]
     Dosage: 1
     Route: 048
  16. CHOLECALCIFEROL [Concomitant]
     Dosage: 1000 UNITS
     Route: 065
  17. LISINOPRIL [Concomitant]
     Dosage: 40 MILLIGRAM
     Route: 048
  18. LIPITOR [Concomitant]
     Dosage: 1
     Route: 048
  19. LEVOTHYROXINE SODIUM [Concomitant]
     Dosage: .137 MILLIGRAM
     Route: 065
  20. ROSUVASTATIN [Concomitant]
     Dosage: .5
     Route: 065
  21. FOSINOPRIL SODIUM [Concomitant]
     Indication: HYPERTENSION
     Dosage: 1
     Route: 048
  22. LACTOBACILLUS [Concomitant]
     Route: 048
  23. ALLOPURINOL [Concomitant]
     Indication: GOUT
     Dosage: 100 MILLIGRAM
  24. TESTOSTERONE [Concomitant]
     Dosage: (1)   2.5MG/24H
     Route: 062

REACTIONS (4)
  - STAPHYLOCOCCAL BACTERAEMIA [None]
  - PANCREATITIS [None]
  - DIABETES MELLITUS [None]
  - SEPTIC ARTHRITIS STAPHYLOCOCCAL [None]
